FAERS Safety Report 6347275-X (Version None)
Quarter: 2009Q3

REPORT INFORMATION
  Report Type: 
  Country: None (occurrence: None)
  Receive Date: 20090910
  Receipt Date: 20090908
  Transmission Date: 20100115
  Serious: Yes (Hospitalization)
  Sender: FDA-Public Use
  Company Number: FR-BRISTOL-MYERS SQUIBB COMPANY-14770556

PATIENT
  Age: 45 Year
  Sex: Female
  Weight: 91 kg

DRUGS (4)
  1. PACLITAXEL [Suspect]
     Indication: NON-SMALL CELL LUNG CANCER
     Dosage: DAY 1 OF 21 DAY
     Route: 065
     Dates: start: 20090520
  2. CARBOPLATIN [Suspect]
     Indication: NON-SMALL CELL LUNG CANCER
     Dosage: DAY 1 OF 21 DAY CYCLE
     Dates: start: 20090520
  3. MOTILIUM [Concomitant]
     Dates: start: 20090731
  4. ZOPHREN [Concomitant]
     Dates: start: 20090731

REACTIONS (4)
  - BACK PAIN [None]
  - CHEST PAIN [None]
  - PAIN [None]
  - VOMITING [None]
